FAERS Safety Report 7497089-2 (Version None)
Quarter: 2011Q2

REPORT INFORMATION
  Report Type: 
  Country: None (occurrence: None)
  Receive Date: 20110523
  Receipt Date: 20110520
  Transmission Date: 20111010
  Serious: Yes (Hospitalization, Other)
  Sender: FDA-Public Use
  Company Number: GB-ABBOTT-11P-167-0727175-00

PATIENT
  Age: 5 Year
  Sex: Male

DRUGS (9)
  1. ANTIBIOTICS [Concomitant]
     Indication: PRODUCT USED FOR UNKNOWN INDICATION
  2. PHENYTOIN [Suspect]
     Indication: STATUS EPILEPTICUS
  3. ERYTHROMYCIN [Suspect]
     Indication: PNEUMONIA MYCOPLASMAL
  4. CEFOTAXIME SODIUM [Suspect]
     Indication: PNEUMONIA MYCOPLASMAL
  5. CLOBAZAM [Suspect]
     Indication: PRODUCT USED FOR UNKNOWN INDICATION
  6. VALPROATE SODIUM [Suspect]
     Indication: PRODUCT USED FOR UNKNOWN INDICATION
  7. GENTAMICIN [Suspect]
     Indication: PNEUMONIA MYCOPLASMAL
  8. PIPERACILLIN [Suspect]
     Indication: PNEUMONIA MYCOPLASMAL
  9. LAMOTRIGINE [Suspect]
     Indication: EPILEPSY

REACTIONS (15)
  - DEVELOPMENTAL DELAY [None]
  - COGNITIVE DISORDER [None]
  - MOVEMENT DISORDER [None]
  - DYSTONIA [None]
  - ISCHAEMIA [None]
  - HYPOXIA [None]
  - STATUS EPILEPTICUS [None]
  - CEREBRAL ATROPHY [None]
  - ENCEPHALOPATHY [None]
  - HYPOTONIA [None]
  - PYREXIA [None]
  - LEARNING DISORDER [None]
  - BRAIN OEDEMA [None]
  - AKINESIA [None]
  - APHASIA [None]
